FAERS Safety Report 11098108 (Version 1)
Quarter: 2015Q2

REPORT INFORMATION
  Report Type: Spontaneous
  Country: US (occurrence: US)
  Receive Date: 20150507
  Receipt Date: 20150507
  Transmission Date: 20150821
  Serious: No
  Sender: FDA-Public Use
  Company Number: US-ELI_LILLY_AND_COMPANY-US201504005454

PATIENT
  Age: 55 Year
  Sex: Female

DRUGS (1)
  1. INSULIN HUMAN [Suspect]
     Active Substance: INSULIN HUMAN
     Indication: DIABETES MELLITUS
     Dosage: UNK, PRN
     Route: 058
     Dates: start: 2010

REACTIONS (9)
  - Dehydration [Unknown]
  - Blood glucose increased [Unknown]
  - Weight decreased [Unknown]
  - Wrong technique in drug usage process [Unknown]
  - Malaise [Unknown]
  - Medication error [Unknown]
  - Drug dose omission [Unknown]
  - Unevaluable event [Unknown]
  - Dizziness [Unknown]

NARRATIVE: CASE EVENT DATE: 201501
